FAERS Safety Report 11807364 (Version 2)
Quarter: 2016Q1

REPORT INFORMATION
  Report Type: Report from Study
  Country: CA (occurrence: CA)
  Receive Date: 20151207
  Receipt Date: 20160215
  Transmission Date: 20160525
  Serious: No
  Sender: FDA-Public Use
  Company Number: CA-OTSUKA-2015_016206

PATIENT
  Age: 20 Year
  Sex: Female

DRUGS (6)
  1. ABILIFY MAINTENA [Suspect]
     Active Substance: ARIPIPRAZOLE
     Indication: SCHIZOPHRENIA
     Dosage: 400 MG, QM
     Route: 030
     Dates: start: 20150930
  2. ABILIFY MAINTENA [Suspect]
     Active Substance: ARIPIPRAZOLE
     Dosage: 300 MG, QM
     Route: 030
     Dates: start: 20151104
  3. ATIVAN [Concomitant]
     Active Substance: LORAZEPAM
     Indication: SCHIZOPHRENIA
     Dosage: 1 MG, TID
     Route: 048
     Dates: start: 201509, end: 20151002
  4. LAX-A-DAY [Concomitant]
     Indication: CONSTIPATION PROPHYLAXIS
     Dosage: 17 G, QD
     Route: 048
     Dates: start: 201509, end: 201509
  5. ABILIFY [Concomitant]
     Active Substance: ARIPIPRAZOLE
     Indication: SCHIZOPHRENIA
     Dosage: 12.5 MG, QD
     Route: 048
     Dates: start: 201509, end: 20151008
  6. ABILIFY MAINTENA [Suspect]
     Active Substance: ARIPIPRAZOLE
     Dosage: 300 MG, QM
     Route: 030
     Dates: start: 20151202

REACTIONS (1)
  - Ligament sprain [Recovered/Resolved]

NARRATIVE: CASE EVENT DATE: 20151013
